FAERS Safety Report 5206526-5 (Version None)
Quarter: 2007Q1

REPORT INFORMATION
  Report Type: 
  Country: None (occurrence: None)
  Receive Date: 20070109
  Receipt Date: 20061229
  Transmission Date: 20070707
  Serious: Yes (Other)
  Sender: FDA-Public Use
  Company Number: SPVI-2006-02292

PATIENT
  Age: 6 Year
  Sex: Male
  Weight: 26.1 kg

DRUGS (2)
  1. DAYTRANA [Suspect]
     Indication: ATTENTION DEFICIT/HYPERACTIVITY DISORDER
     Dosage: 30MG, TRANSDERMAL
     Route: 062
     Dates: start: 20060814, end: 20060901
  2. CONCERTA [Concomitant]

REACTIONS (1)
  - URTICARIA GENERALISED [None]
